FAERS Safety Report 12917735 (Version 2)
Quarter: 2016Q4

REPORT INFORMATION
  Report Type: Spontaneous
  Country: US (occurrence: US)
  Receive Date: 20161107
  Receipt Date: 20161221
  Transmission Date: 20170207
  Serious: No
  Sender: FDA-Public Use
  Company Number: US-PFIZER INC-2016514471

PATIENT
  Age: 57 Year
  Sex: Female
  Weight: 51.26 kg

DRUGS (4)
  1. LETROZOLE. [Suspect]
     Active Substance: LETROZOLE
     Indication: HORMONE THERAPY
     Dosage: 2.5 MG, EVERY DAY
     Route: 048
     Dates: start: 201607
  2. IBRANCE [Suspect]
     Active Substance: PALBOCICLIB
     Indication: BREAST CANCER METASTATIC
     Dosage: 125 MG, CYCLIC (EVERY MORNING FOR 21 DAYS THEN 7 DAYS OFF)
     Route: 048
     Dates: start: 201608
  3. FENTANYL. [Concomitant]
     Active Substance: FENTANYL
     Indication: PAIN
     Dosage: 2.5 MG PATCH EVERY 4 DAYS
     Route: 062
     Dates: start: 20160728
  4. PERCOCET [Concomitant]
     Active Substance: ACETAMINOPHEN\OXYCODONE HYDROCHLORIDE
     Indication: PAIN
     Dosage: UNK, ONCE A DAY, AS NEEDED
     Route: 048
     Dates: start: 201607

REACTIONS (3)
  - Memory impairment [Unknown]
  - Confusional state [Unknown]
  - Feeling abnormal [Recovering/Resolving]

NARRATIVE: CASE EVENT DATE: 201608
